FAERS Safety Report 6482614-0 (Version None)
Quarter: 2009Q4

REPORT INFORMATION
  Report Type: 
  Country: None (occurrence: None)
  Receive Date: 20091202
  Receipt Date: 20091123
  Transmission Date: 20100525
  Serious: Yes (Death, Hospitalization)
  Sender: FDA-Public Use
  Company Number: ADR51832009

PATIENT
  Age: 80 Year
  Sex: Female

DRUGS (2)
  1. IPRATROPIUM BROMIDE AND ALBUTEROL SULFATE [Suspect]
     Dosage: 6 DOSES/DAY, INHALED
     Route: 055
  2. ADVAIR DISKUS 100/50 [Concomitant]

REACTIONS (9)
  - ARTERIOSCLEROSIS [None]
  - ATRIAL FIBRILLATION [None]
  - BLOOD PRESSURE INCREASED [None]
  - CANDIDIASIS [None]
  - CARDIAC FAILURE CONGESTIVE [None]
  - DRUG INTERACTION [None]
  - HEART RATE INCREASED [None]
  - HEART RATE IRREGULAR [None]
  - PNEUMONIA [None]
